FAERS Safety Report 7081398-5 (Version None)
Quarter: 2010Q4

REPORT INFORMATION
  Report Type: 
  Country: None (occurrence: None)
  Receive Date: 20101103
  Receipt Date: 20101025
  Transmission Date: 20110411
  Serious: Yes (Hospitalization)
  Sender: FDA-Public Use
  Company Number: SZ-ASTRAZENECA-2010SE50744

PATIENT
  Age: 78 Year
  Sex: Female

DRUGS (12)
  1. SEROQUEL [Suspect]
     Route: 048
     Dates: start: 20100407, end: 20100414
  2. SEROQUEL [Suspect]
     Route: 048
     Dates: start: 20100415, end: 20100421
  3. EFFEXOR [Suspect]
     Route: 048
     Dates: start: 20080101, end: 20100422
  4. PANTOPRAZOLE SODIUM [Suspect]
     Route: 048
     Dates: start: 20080101, end: 20100421
  5. SPASMOCANULASE [Suspect]
     Route: 048
     Dates: start: 20080101, end: 20100422
  6. DESTRUSITOL [Suspect]
     Route: 048
     Dates: start: 20080101, end: 20100423
  7. LIVIAL [Suspect]
     Route: 048
     Dates: start: 20080101, end: 20100422
  8. PERENTEROL [Suspect]
     Route: 048
     Dates: start: 20080101, end: 20100420
  9. MAGNESIOCARD [Suspect]
     Route: 048
     Dates: start: 20100416, end: 20100422
  10. VITAMIN B-12 [Suspect]
     Route: 048
     Dates: start: 20100410, end: 20100422
  11. LYRICA [Suspect]
     Route: 048
     Dates: start: 20100413, end: 20100418
  12. LYRICA [Suspect]
     Route: 048
     Dates: start: 20100419

REACTIONS (5)
  - ALANINE AMINOTRANSFERASE INCREASED [None]
  - ASPARTATE AMINOTRANSFERASE INCREASED [None]
  - BLOOD ALKALINE PHOSPHATASE INCREASED [None]
  - BLOOD BILIRUBIN INCREASED [None]
  - GAMMA-GLUTAMYLTRANSFERASE INCREASED [None]
